FAERS Safety Report 17687347 (Version 1)
Quarter: 2020Q2

REPORT INFORMATION
  Report Type: Report from Study
  Country: IT (occurrence: IT)
  Receive Date: 20200421
  Receipt Date: 20200421
  Transmission Date: 20200714
  Serious: Yes (Hospitalization)
  Sender: FDA-Public Use
  Company Number: IT-TEVA-2020-IT-1225232

PATIENT
  Age: 49 Year
  Sex: Female

DRUGS (4)
  1. DEPAKIN 500 MG COMPRESSE GASTRORESISTENTI [Concomitant]
     Active Substance: VALPROATE SODIUM
     Dosage: 1 G
     Route: 048
  2. [REAPTAN 10 MG/10 MG] COMPRESSE [Concomitant]
     Dosage: 1 KU
     Route: 048
  3. NEBIVOLOLO AUROBINDO 5 MG COMPRESSE [Concomitant]
     Dosage: 2.5 MG
     Route: 048
  4. DIAZEPAM. [Suspect]
     Active Substance: DIAZEPAM
     Indication: AGITATION
     Dosage: 40 GTT
     Route: 048
     Dates: start: 20200107, end: 20200107

REACTIONS (2)
  - Sopor [Recovering/Resolving]
  - Drug abuse [Recovering/Resolving]

NARRATIVE: CASE EVENT DATE: 20200107
